FAERS Safety Report 17256258 (Version 1)
Quarter: 2020Q1

REPORT INFORMATION
  Report Type: Spontaneous
  Country: US (occurrence: US)
  Receive Date: 20200110
  Receipt Date: 20200110
  Transmission Date: 20200409
  Serious: No
  Sender: FDA-Public Use
  Company Number: US-ELI_LILLY_AND_COMPANY-US201912012191

PATIENT
  Age: 65 Year
  Sex: Male

DRUGS (2)
  1. HUMALOG MIX75/25 [Suspect]
     Active Substance: INSULIN LISPRO
     Indication: DIABETES MELLITUS
     Dosage: 80 U, DAILY
     Route: 058
  2. HUMALOG MIX75/25 [Suspect]
     Active Substance: INSULIN LISPRO
     Dosage: 80 U, DAILY
     Route: 058

REACTIONS (1)
  - Blood glucose increased [Recovering/Resolving]
